FAERS Safety Report 15596131 (Version 1)
Quarter: 2018Q4

REPORT INFORMATION
  Report Type: Spontaneous
  Country: FR (occurrence: FR)
  Receive Date: 20181108
  Receipt Date: 20181108
  Transmission Date: 20190205
  Serious: Yes (Hospitalization)
  Sender: FDA-Public Use
  Company Number: FR-TEVA-2018-FR-972163

PATIENT
  Age: 85 Year
  Sex: Female
  Weight: 59 kg

DRUGS (1)
  1. PREDNISOLONE. [Suspect]
     Active Substance: PREDNISOLONE
     Indication: AUTOIMMUNE HAEMOLYTIC ANAEMIA
     Dosage: 10 MILLIGRAM DAILY;
     Route: 048
     Dates: start: 20180621, end: 20181006

REACTIONS (2)
  - Bronchopulmonary aspergillosis [Recovering/Resolving]
  - Pneumocystis jirovecii pneumonia [Recovering/Resolving]

NARRATIVE: CASE EVENT DATE: 201808
